FAERS Safety Report 8296467-1 (Version None)
Quarter: 2012Q2

REPORT INFORMATION
  Report Type: 
  Country: None (occurrence: None)
  Receive Date: 20120418
  Receipt Date: 20120411
  Transmission Date: 20120825
  Serious: Yes (Other)
  Sender: FDA-Public Use
  Company Number: BR-PFIZER INC-2012091399

PATIENT
  Age: 56 Year
  Sex: Female

DRUGS (10)
  1. ARCOXIA [Concomitant]
     Indication: SPINAL COLUMN INJURY
     Dosage: 1 TABLET (UNKNOWN DOSE) DAILY
  2. BROMAZEPAM [Concomitant]
     Indication: GENERAL PHYSICAL CONDITION ABNORMAL
  3. BROMAZEPAM [Concomitant]
     Indication: SEDATIVE THERAPY
     Dosage: 1 TABLET (UNKNOWN DOSE) IN THE EVENING
     Dates: start: 20120401
  4. MILGAMMA [Concomitant]
     Indication: SPINAL COLUMN INJURY
     Dosage: 2 TABLETS (UNKNOWN DOSE) DAILY FOR 15 DAYS
  5. LYRICA [Suspect]
     Indication: PAIN
     Dosage: 75 MG, 2X/DAY, EVERY 12 HOURS
     Route: 048
     Dates: start: 20120407
  6. LYRICA [Suspect]
     Indication: ARTHRALGIA
  7. NEBIVOLOL HCL [Concomitant]
     Indication: HYPERTENSION
     Dosage: 5 MG, 1X/DAY
     Dates: start: 20120408
  8. QUADRIDERM [Suspect]
     Indication: GENERAL PHYSICAL CONDITION ABNORMAL
     Dosage: UNK
  9. LOSARTAN [Concomitant]
     Indication: HYPERTENSION
     Dosage: 2 TABLETS (UNKNOWN DOSE) DAILY
     Dates: start: 20110101
  10. HYGROTON [Concomitant]
     Indication: HYPERTENSION
     Dosage: UNK
     Dates: start: 20110101

REACTIONS (7)
  - INTERVERTEBRAL DISC PROTRUSION [None]
  - HEAD DISCOMFORT [None]
  - MALAISE [None]
  - BRADYPHRENIA [None]
  - NERVE INJURY [None]
  - HEADACHE [None]
  - FEELING ABNORMAL [None]
